FAERS Safety Report 8554146-7 (Version None)
Quarter: 2012Q3

REPORT INFORMATION
  Report Type: 
  Country: None (occurrence: None)
  Receive Date: 20120731
  Receipt Date: 20120727
  Transmission Date: 20120928
  Serious: Yes (Other)
  Sender: FDA-Public Use
  Company Number: PHHY2012AU064977

PATIENT
  Sex: Female

DRUGS (6)
  1. ACETAMINOPHEN W/ CODEINE [Concomitant]
  2. ZOLEDRONOC ACID [Suspect]
     Dosage: 5 MG
     Route: 042
     Dates: start: 20111021
  3. SEREPAX [Concomitant]
  4. WARFARIN SODIUM [Concomitant]
  5. VALIUM [Concomitant]
  6. ZOLEDRONOC ACID [Suspect]
     Dosage: 5 MG
     Route: 042
     Dates: start: 20101027

REACTIONS (4)
  - DIARRHOEA [None]
  - INTERNATIONAL NORMALISED RATIO FLUCTUATION [None]
  - GINGIVAL PAIN [None]
  - PAIN [None]
